FAERS Safety Report 9357901 (Version 2)
Quarter: 2013Q3

REPORT INFORMATION
  Report Type: Spontaneous
  Country: IT (occurrence: IT)
  Receive Date: 20130620
  Receipt Date: 20130730
  Transmission Date: 20140515
  Serious: Yes (Hospitalization)
  Sender: FDA-Public Use
  Company Number: IT-BRISTOL-MYERS SQUIBB COMPANY-19020189

PATIENT
  Age: 85 Year
  Sex: Female

DRUGS (10)
  1. COUMADIN TABS 5 MG [Suspect]
     Indication: ATRIAL FIBRILLATION
     Dosage: 1DF:1 UNIT
     Route: 048
     Dates: start: 20110101, end: 20121024
  2. ACETYLSALICYLIC ACID [Suspect]
     Indication: MYOCARDIAL ISCHAEMIA
     Route: 048
     Dates: start: 20110101, end: 20121024
  3. FUROSEMIDE [Concomitant]
     Dosage: TABS
  4. ALDACTONE [Concomitant]
     Dosage: CAPS
  5. TRIATEC [Concomitant]
     Dosage: TABS
  6. ZYLORIC [Concomitant]
     Dosage: TABS
  7. LANOXIN [Concomitant]
     Dosage: TABS
  8. ANTRA [Concomitant]
     Dosage: CAPS
  9. SPIRIVA [Concomitant]
     Dosage: CAPS
  10. CONGESCOR [Concomitant]
     Dosage: TABS

REACTIONS (1)
  - Anaemia [Recovering/Resolving]
